FAERS Safety Report 16210640 (Version 1)
Quarter: 2019Q2

REPORT INFORMATION
  Report Type: Spontaneous
  Country: US (occurrence: US)
  Receive Date: 20190314
  Receipt Date: 20190314
  Transmission Date: 20190711
  Serious: No
  Sender: FDA-Public Use
  Company Number: None

PATIENT
  Age: 76 Year
  Sex: Female

DRUGS (1)
  1. REPATHA [Suspect]
     Active Substance: EVOLOCUMAB
     Dates: start: 20180101, end: 20190307

REACTIONS (3)
  - Joint range of motion decreased [None]
  - Joint stiffness [None]
  - Myalgia [None]

NARRATIVE: CASE EVENT DATE: 20190307
